FAERS Safety Report 7940591-7 (Version None)
Quarter: 2011Q4

REPORT INFORMATION
  Report Type: 
  Country: None (occurrence: None)
  Receive Date: 20111114
  Receipt Date: 20101109
  Transmission Date: 20120403
  Serious: Yes (Hospitalization)
  Sender: FDA-Public Use
  Company Number: 2010S1001696

PATIENT
  Age: 47 Year
  Sex: Male

DRUGS (5)
  1. CUBICIN [Suspect]
     Indication: OSTEOMYELITIS
     Dosage: 6 MG/KG; Q24H;
  2. CUBICIN [Suspect]
     Indication: STAPHYLOCOCCAL BACTERAEMIA
     Dosage: 6 MG/KG; Q24H;
  3. VANCOMYCIN [Concomitant]
  4. PIPERACILLIN AND TAZOBACTAM [Concomitant]
  5. CEFTRIAXONE [Concomitant]

REACTIONS (3)
  - ANTIMICROBIAL SUSCEPTIBILITY TEST RESISTANT [None]
  - STREPTOCOCCAL BACTERAEMIA [None]
  - SEPTIC SHOCK [None]
